FAERS Safety Report 7400736-4 (Version None)
Quarter: 2011Q2

REPORT INFORMATION
  Report Type: 
  Country: None (occurrence: None)
  Receive Date: 20110407
  Receipt Date: 20110401
  Transmission Date: 20111010
  Serious: Yes (Hospitalization, Congenital Anomaly)
  Sender: FDA-Public Use
  Company Number: A0916813A

PATIENT
  Sex: Male

DRUGS (2)
  1. PRENATAL VITAMINS [Concomitant]
  2. PAXIL [Suspect]
     Indication: DEPRESSION
     Dosage: 20MG PER DAY
     Route: 064
     Dates: start: 20020101

REACTIONS (12)
  - ARNOLD-CHIARI MALFORMATION [None]
  - VESICOURETERIC REFLUX [None]
  - CONGENITAL MUSCULOSKELETAL ANOMALY [None]
  - SPINA BIFIDA [None]
  - HIP DYSPLASIA [None]
  - CONGENITAL KNEE DEFORMITY [None]
  - MENINGITIS [None]
  - DRUG EXPOSURE DURING PREGNANCY [None]
  - HYDROCEPHALUS [None]
  - MENINGOMYELOCELE [None]
  - CONGENITAL GENITOURINARY ABNORMALITY [None]
  - FOETAL GROWTH RESTRICTION [None]
